FAERS Safety Report 12579927 (Version 2)
Quarter: 2016Q3

REPORT INFORMATION
  Report Type: Spontaneous
  Country: US (occurrence: US)
  Receive Date: 20160721
  Receipt Date: 20160830
  Transmission Date: 20161109
  Serious: Yes (Hospitalization)
  Sender: FDA-Public Use
  Company Number: US-PFIZER INC-2016335898

PATIENT
  Sex: Male
  Weight: 83.9 kg

DRUGS (5)
  1. NITROSTAT [Suspect]
     Active Substance: NITROGLYCERIN
     Indication: CHEST PAIN
     Dosage: 0.4MG TABLETS AS NEEDED UNDER THE TONGUE
     Dates: start: 1996
  2. METOPROLOL. [Concomitant]
     Active Substance: METOPROLOL
     Indication: CARDIAC DISORDER
     Dosage: 50MG ONCE EVERY 12 HOURS
     Dates: start: 1996
  3. SIMVASTATIN. [Concomitant]
     Active Substance: SIMVASTATIN
     Indication: BLOOD CHOLESTEROL ABNORMAL
     Dosage: 40MG A DAY
     Dates: start: 1996
  4. BACLOFEN. [Concomitant]
     Active Substance: BACLOFEN
     Indication: UPPER MOTOR NEURONE LESION
     Dosage: 90MG A DAY ;30MG IN MORNING, MIDDAY AND NIGHT
     Dates: start: 2013
  5. ASPIRIN. [Concomitant]
     Active Substance: ASPIRIN
     Dosage: 325MG ONE A DAY
     Dates: start: 1996

REACTIONS (5)
  - Drug ineffective [Unknown]
  - Poor quality drug administered [Unknown]
  - Headache [Unknown]
  - Incorrect product storage [Unknown]
  - Dyspepsia [Unknown]

NARRATIVE: CASE EVENT DATE: 1996
